FAERS Safety Report 6420770-0 (Version None)
Quarter: 2009Q4

REPORT INFORMATION
  Report Type: 
  Country: None (occurrence: None)
  Receive Date: 20091030
  Receipt Date: 20091020
  Transmission Date: 20100525
  Serious: Yes (Hospitalization)
  Sender: FDA-Public Use
  Company Number: US-BIOGENIDEC-2009BI031553

PATIENT
  Sex: Female

DRUGS (8)
  1. AVONEX [Suspect]
     Indication: MULTIPLE SCLEROSIS
     Route: 030
     Dates: start: 20001028, end: 20051201
  2. AVONEX [Suspect]
     Route: 030
     Dates: start: 20090915
  3. NEURONTIN [Concomitant]
  4. VESICARE [Concomitant]
  5. AMITRIPTYLINE [Concomitant]
  6. AVELOX [Concomitant]
  7. DITROPAN [Concomitant]
  8. STEROIDS (NOS) [Concomitant]

REACTIONS (7)
  - CONSTIPATION [None]
  - GAIT SPASTIC [None]
  - HYPERAESTHESIA [None]
  - MUCOSAL INFLAMMATION [None]
  - MULTIPLE SCLEROSIS RELAPSE [None]
  - OLIGODENDROGLIOMA [None]
  - PANCYTOPENIA [None]
